FAERS Safety Report 7052677-2 (Version None)
Quarter: 2010Q4

REPORT INFORMATION
  Report Type: 
  Country: None (occurrence: None)
  Receive Date: 20101008
  Receipt Date: 20100930
  Transmission Date: 20110411
  Serious: Yes (Death)
  Sender: FDA-Public Use
  Company Number: WAES 1010USA00064

PATIENT
  Age: 54 Year
  Sex: Male
  Weight: 87.9978 kg

DRUGS (10)
  1. CAP VORINOSTAT UNK [Suspect]
     Indication: MULTIPLE MYELOMA
     Dosage: 400 MG/DAILY/PO
     Route: 048
     Dates: start: 20100917, end: 20100930
  2. VELCADE [Suspect]
     Indication: MULTIPLE MYELOMA
     Dosage: 1.3 MG/M[2]/IV
     Route: 042
     Dates: start: 20100917, end: 20100930
  3. REVLIMID [Suspect]
     Indication: MULTIPLE MYELOMA
     Dosage: 25 MG/DAILY/PO
     Route: 048
     Dates: start: 20100917, end: 20100930
  4. DECADRON [Suspect]
     Indication: MULTIPLE MYELOMA
     Dosage: 20 MG/DAILY/PO
     Route: 048
     Dates: start: 20100917, end: 20100930
  5. COLACE [Concomitant]
  6. ASPIRIN [Concomitant]
  7. FENOFIBRIC ACID [Concomitant]
  8. LEVOTHYROXINE SODIUM [Concomitant]
  9. LORATADINE [Concomitant]
  10. METHOCARBAMOL [Concomitant]

REACTIONS (3)
  - CARDIO-RESPIRATORY ARREST [None]
  - DYSPNOEA [None]
  - MYOCARDIAL INFARCTION [None]
